FAERS Safety Report 17188764 (Version 1)
Quarter: 2019Q4

REPORT INFORMATION
  Report Type: Other
  Country: US (occurrence: US)
  Receive Date: 20191222
  Receipt Date: 20191222
  Transmission Date: 20200122
  Serious: No
  Sender: FDA-Public Use
  Company Number: US-ACORDA-ACO_162165_2019

PATIENT
  Sex: Male

DRUGS (3)
  1. INBRIJA [Suspect]
     Active Substance: LEVODOPA
     Indication: PARKINSON^S DISEASE
     Dosage: 2 CAPSULES (84MG) AS NEEDED, NOT TO EXCEED 5 DOSES A DAY
     Dates: start: 201911
  2. INBRIJA [Suspect]
     Active Substance: LEVODOPA
     Indication: ON AND OFF PHENOMENON
  3. CARBIDOPA/LEVODOPA [Concomitant]
     Active Substance: CARBIDOPA\LEVODOPA
     Indication: PRODUCT USED FOR UNKNOWN INDICATION
     Dosage: 25 MG- 100 MG, QID
     Route: 065

REACTIONS (7)
  - Arthralgia [Unknown]
  - Cough [Unknown]
  - Incorrect dose administered [Unknown]
  - Somnolence [Unknown]
  - Pain in extremity [Unknown]
  - Drug ineffective [Unknown]
  - Paraesthesia [Unknown]
